FAERS Safety Report 16250747 (Version 2)
Quarter: 2019Q2

REPORT INFORMATION
  Report Type: Spontaneous
  Country: US (occurrence: US)
  Receive Date: 20190429
  Receipt Date: 20190510
  Transmission Date: 20190711
  Serious: Yes (Other)
  Sender: FDA-Public Use
  Company Number: US-PFIZER INC-2019176932

PATIENT
  Age: 59 Year
  Sex: Female

DRUGS (2)
  1. TRANEXAMIC ACID. [Suspect]
     Active Substance: TRANEXAMIC ACID
     Indication: SPINAL ANAESTHESIA
     Dosage: UNK
     Route: 037
  2. TRANEXAMIC ACID. [Suspect]
     Active Substance: TRANEXAMIC ACID
     Indication: ANALGESIC THERAPY

REACTIONS (9)
  - Back pain [Unknown]
  - Muscle twitching [Unknown]
  - Nervous system disorder [Unknown]
  - Muscle rigidity [Unknown]
  - Hypertension [Unknown]
  - Product use issue [Unknown]
  - Seizure [Unknown]
  - Product preparation issue [Unknown]
  - Somnolence [Unknown]
